FAERS Safety Report 7636356 (Version 3)
Quarter: 2013Q4

REPORT INFORMATION
  Report Type: Report from Study
  Country: RO (occurrence: RO)
  Receive Date: 20101021
  Receipt Date: 20131118
  Transmission Date: 20140711
  Serious: Yes (Life-Threatening)
  Sender: FDA-Public Use
  Company Number: RO-ROCHE-734701

PATIENT
  Age: 44 Year
  Sex: Male

DRUGS (2)
  1. PEG-INTERFERON ALFA 2A [Suspect]
     Indication: HEPATITIS C
     Dosage: FREQUENCY:WEEKLY
     Route: 058
     Dates: start: 20100122, end: 20100217
  2. RIBAVIRIN [Suspect]
     Indication: HEPATITIS C
     Dosage: FREQUENCY:DAILY
     Route: 048
     Dates: start: 20100122, end: 20100217

REACTIONS (1)
  - Cerebral thrombosis [Recovered/Resolved]
